FAERS Safety Report 7479666-8 (Version None)
Quarter: 2011Q2

REPORT INFORMATION
  Report Type: 
  Country: None (occurrence: None)
  Receive Date: 20110513
  Receipt Date: 20110509
  Transmission Date: 20111010
  Serious: Yes (Death)
  Sender: FDA-Public Use
  Company Number: US-CELGENEUS-028-21880-11051007

PATIENT
  Sex: Female
  Weight: 45 kg

DRUGS (5)
  1. PAMIDRONATE DISODIUM [Concomitant]
     Indication: MULTIPLE MYELOMA
     Route: 065
     Dates: end: 20110201
  2. REVLIMID [Suspect]
     Indication: MULTIPLE MYELOMA
     Route: 048
     Dates: end: 20110201
  3. DOXORUBICIN HYDROCHLORIDE [Concomitant]
     Indication: MULTIPLE MYELOMA
     Route: 065
     Dates: end: 20110201
  4. DEXAMETHASONE [Concomitant]
     Indication: MULTIPLE MYELOMA
     Route: 065
     Dates: end: 20110201
  5. BORTEZOMIB [Concomitant]
     Indication: MULTIPLE MYELOMA
     Route: 065
     Dates: end: 20110201

REACTIONS (2)
  - MULTIPLE MYELOMA [None]
  - NO THERAPEUTIC RESPONSE [None]
